FAERS Safety Report 10349568 (Version 1)
Quarter: 2014Q3

REPORT INFORMATION
  Report Type: Spontaneous
  Country: AU (occurrence: None)
  Receive Date: 20140728
  Receipt Date: 20140728
  Transmission Date: 20150326
  Serious: Yes (Hospitalization)
  Sender: FDA-Public Use
  Company Number: AUR-APL-2014-07970

PATIENT
  Age: 66 Year
  Sex: Male
  Weight: 80 kg

DRUGS (5)
  1. OLMETEC (OLMESARTAN MEDOXOMIL) [Suspect]
     Active Substance: OLMESARTAN MEDOXOMIL
     Indication: PRODUCT USED FOR UNKNOWN INDICATION
  2. AMLODIPINE [Suspect]
     Active Substance: AMLODIPINE BESYLATE
     Indication: PRODUCT USED FOR UNKNOWN INDICATION
     Dosage: 150MG, INTRATRACHEAL
     Route: 039
  3. DABIGATRAN (DABIGATRAN) (DABIGA TRAN) [Suspect]
     Active Substance: DABIGATRAN
     Indication: PRODUCT USED FOR UNKNOWN INDICATION
  4. MOXONIDINE (MOXONIDINE) [Suspect]
     Active Substance: MOXONIDINE
     Indication: PRODUCT USED FOR UNKNOWN INDICATION
  5. METOPROLOL (METOPROLOL) [Suspect]
     Active Substance: METOPROLOL
     Indication: PRODUCT USED FOR UNKNOWN INDICATION

REACTIONS (10)
  - Fall [None]
  - Toxicity to various agents [None]
  - Hypotension [None]
  - Coagulopathy [None]
  - Suicide attempt [None]
  - Haemodynamic instability [None]
  - Bradycardia [None]
  - Intentional overdose [None]
  - Continuous haemodiafiltration [None]
  - Renal impairment [None]
